FAERS Safety Report 4749503-0 (Version None)
Quarter: 2005Q3

REPORT INFORMATION
  Report Type: 
  Country: None (occurrence: None)
  Receive Date: 20050819
  Receipt Date: 20050629
  Transmission Date: 20060218
  Serious: Yes (Hospitalization)
  Sender: FDA-Public Use
  Company Number: 2005S1005663

PATIENT
  Age: 54 Year
  Sex: Female

DRUGS (2)
  1. CLOZAPINE [Suspect]
     Indication: SCHIZOPHRENIA, PARANOID TYPE
     Dosage: 100 MG; BID; PO
     Route: 048
     Dates: start: 20010301, end: 20050501
  2. ADRIAMYCIN PFS [Suspect]
     Indication: BREAST CANCER

REACTIONS (3)
  - BREAST CANCER [None]
  - LEUKOPENIA [None]
  - MENTAL DISORDER [None]
